FAERS Safety Report 16710726 (Version 1)
Quarter: 2019Q3

REPORT INFORMATION
  Report Type: Spontaneous
  Country: FR (occurrence: FR)
  Receive Date: 20190816
  Receipt Date: 20190816
  Transmission Date: 20191004
  Serious: Yes (Hospitalization)
  Sender: FDA-Public Use
  Company Number: FR-PFIZER INC-2019344320

PATIENT
  Age: 26 Year
  Sex: Male
  Weight: 74 kg

DRUGS (4)
  1. CODOLIPRANE [Suspect]
     Active Substance: ACETAMINOPHEN\CODEINE PHOSPHATE
     Indication: TOXICITY TO VARIOUS AGENTS
     Dosage: 16 DF, SINGLE
     Route: 048
     Dates: start: 20190104, end: 20190104
  2. DOLIPRANE [Suspect]
     Active Substance: ACETAMINOPHEN
     Indication: TOXICITY TO VARIOUS AGENTS
     Dosage: 4 DF, SINGLE
     Route: 048
     Dates: start: 20190104, end: 20190104
  3. IBUPROFEN. [Suspect]
     Active Substance: IBUPROFEN
     Indication: TOXICITY TO VARIOUS AGENTS
     Dosage: 8 G, SINGLE
     Route: 048
     Dates: start: 20190104, end: 20190104
  4. XANAX [Suspect]
     Active Substance: ALPRAZOLAM
     Indication: TOXICITY TO VARIOUS AGENTS
     Dosage: 15 DF, SINGLE
     Route: 048
     Dates: start: 20190104, end: 20190104

REACTIONS (4)
  - Somnolence [Recovered/Resolved]
  - Disorientation [Recovered/Resolved]
  - Coma [Recovered/Resolved]
  - Overdose [Unknown]

NARRATIVE: CASE EVENT DATE: 20190104
